FAERS Safety Report 10940280 (Version 2)
Quarter: 2015Q2

REPORT INFORMATION
  Report Type: Spontaneous
  Country: US (occurrence: US)
  Receive Date: 20150322
  Receipt Date: 20150525
  Transmission Date: 20150821
  Serious: No
  Sender: FDA-Public Use
  Company Number: US-JNJFOC-20140512008

PATIENT
  Age: 52 Year
  Sex: Female
  Weight: 65.77 kg

DRUGS (4)
  1. CYMBALTA [Concomitant]
     Active Substance: DULOXETINE HYDROCHLORIDE
     Indication: PAIN
     Route: 048
  2. NUCYNTA ER [Suspect]
     Active Substance: TAPENTADOL HYDROCHLORIDE
     Indication: BACK PAIN
     Dosage: TWICE DAILY
     Route: 048
     Dates: start: 2012, end: 201405
  3. GABAPENTIN. [Concomitant]
     Active Substance: GABAPENTIN
     Indication: PAIN
     Route: 048
  4. NUCYNTA ER [Suspect]
     Active Substance: TAPENTADOL HYDROCHLORIDE
     Indication: BACK PAIN
     Dosage: FOUR TIMES DAILY
     Route: 048
     Dates: start: 2012, end: 201405

REACTIONS (3)
  - Contraindication to medical treatment [Unknown]
  - Drug prescribing error [Unknown]
  - Drug screen negative [Unknown]

NARRATIVE: CASE EVENT DATE: 2012
